FAERS Safety Report 11127146 (Version 1)
Quarter: 2015Q2

REPORT INFORMATION
  Report Type: Spontaneous
  Country: MX (occurrence: MX)
  Receive Date: 20150521
  Receipt Date: 20150521
  Transmission Date: 20150821
  Serious: Yes (Other)
  Sender: FDA-Public Use
  Company Number: MX-009507513-1505MEX006433

PATIENT
  Age: 41 Year
  Sex: Female
  Weight: 55 kg

DRUGS (1)
  1. PEGTRON [Suspect]
     Active Substance: PEGINTERFERON ALFA-2B
     Indication: MALIGNANT MELANOMA
     Dosage: UNK

REACTIONS (1)
  - Melanoma recurrent [Unknown]
